FAERS Safety Report 18513403 (Version 1)
Quarter: 2020Q4

REPORT INFORMATION
  Report Type: Other
  Country: TN (occurrence: TN)
  Receive Date: 20201117
  Receipt Date: 20201117
  Transmission Date: 20210114
  Serious: Yes (Hospitalization)
  Sender: FDA-Public Use
  Company Number: TN-EMD SERONO-9197726

PATIENT
  Age: 86 Year
  Sex: Female

DRUGS (1)
  1. METFORMIN [Suspect]
     Active Substance: METFORMIN HYDROCHLORIDE
     Indication: DIABETES MELLITUS

REACTIONS (5)
  - Lactic acidosis [Recovering/Resolving]
  - Accidental poisoning [Unknown]
  - Oliguria [Recovering/Resolving]
  - Atrial fibrillation [Unknown]
  - Diastolic dysfunction [Unknown]
